FAERS Safety Report 4385897-6 (Version None)
Quarter: 2004Q2

REPORT INFORMATION
  Report Type: 
  Country: None (occurrence: None)
  Receive Date: 20040628
  Receipt Date: 20040615
  Transmission Date: 20050107
  Serious: Yes (Hospitalization)
  Sender: FDA-Public Use
  Company Number: GB-GLAXOSMITHKLINE-B0335844A

PATIENT
  Age: 76 Year
  Sex: Female

DRUGS (6)
  1. AMOXICILLIN AND CLAVULANATE POTASSIUM [Suspect]
     Indication: SEPSIS
     Dosage: 625MG THREE TIMES PER DAY
     Route: 048
     Dates: start: 20030708, end: 20030714
  2. OLANZAPINE [Suspect]
     Dosage: 5MG PER DAY
     Route: 048
     Dates: end: 20030723
  3. LEVOTHYROXINE SODIUM [Concomitant]
     Indication: HYPOTHYROIDISM
     Dosage: 100MG PER DAY
     Route: 048
  4. BENDROFLUAZIDE [Concomitant]
     Indication: HYPERTENSION
     Dosage: 2.5MG PER DAY
     Route: 048
     Dates: end: 20030613
  5. LORAZEPAM [Concomitant]
     Indication: SEDATION
     Route: 048
     Dates: end: 20030613
  6. ZOPICLONE [Concomitant]
     Indication: SEDATION
     Route: 048
     Dates: end: 20030613

REACTIONS (5)
  - ASPARTATE AMINOTRANSFERASE INCREASED [None]
  - BLOOD ALKALINE PHOSPHATASE INCREASED [None]
  - BLOOD BILIRUBIN INCREASED [None]
  - GAMMA-GLUTAMYLTRANSFERASE INCREASED [None]
  - JAUNDICE [None]
